FAERS Safety Report 8785597 (Version 4)
Quarter: 2012Q4

REPORT INFORMATION
  Report Type: Report from Study
  Country: US (occurrence: US)
  Receive Date: 20120914
  Receipt Date: 20121012
  Transmission Date: 20130627
  Serious: Yes (Death, Hospitalization)
  Sender: FDA-Public Use
  Company Number: US-CELGENEUS-163-21880-12091202

PATIENT
  Age: 67 Year

DRUGS (30)
  1. REVLIMID [Suspect]
     Indication: MULTIPLE MYELOMA
     Dosage: 25 Milligram
     Route: 048
     Dates: start: 20120814
  2. DEXAMETHASONE [Suspect]
     Indication: MULTIPLE MYELOMA
     Dosage: 5.7143 Milligram
     Route: 048
     Dates: start: 20120814
  3. ELOTUZUMAB [Suspect]
     Indication: MULTIPLE MYELOMA
     Route: 065
  4. ONDANSETRON [Concomitant]
     Indication: NAUSEA
     Dosage: 8 Milligram
     Route: 041
     Dates: start: 20120819, end: 20120819
  5. MORPHINE [Concomitant]
     Indication: ABDOMINAL PAIN LOWER
     Dosage: 2 Milligram
     Route: 041
     Dates: start: 20120819, end: 20120819
  6. PANTOPRAZOLE [Concomitant]
     Indication: INDIGESTION
     Dosage: 40 Milligram
     Route: 041
     Dates: start: 20120819, end: 20120819
  7. SODIUM CHLORIDE [Concomitant]
     Indication: DRUG USE FOR UNKNOWN INDICATION
     Route: 065
     Dates: start: 20120819, end: 20120819
  8. DOCUSATE SODIUM [Concomitant]
     Indication: CONSTIPATION
     Dosage: 200 Milligram
     Route: 048
     Dates: start: 20120819, end: 20120819
  9. POTASSIUM CHLORIDE [Concomitant]
     Indication: DRUG USE FOR UNKNOWN INDICATION
     Route: 065
     Dates: start: 20120819, end: 20120819
  10. MEPERIDINE [Concomitant]
     Indication: ABDOMINAL PAIN LOWER
     Dosage: 25 Milligram
     Route: 030
     Dates: start: 20120819, end: 20120819
  11. LACTULOSE [Concomitant]
     Indication: CONSTIPATION
     Dosage: 30 milliliter
     Route: 048
     Dates: start: 20120819, end: 20120819
  12. FISH OIL W/VITAMIN E [Concomitant]
     Indication: SUPPLEMENTATION THERAPY
     Dosage: 1 Capsule
     Route: 048
     Dates: start: 20120805
  13. PRILOSEC [Concomitant]
     Indication: INDIGESTION
     Dosage: 1 Capsule
     Route: 048
     Dates: start: 20100101
  14. MULTIVITAMINS [Concomitant]
     Indication: DRUG USE FOR UNKNOWN INDICATION
     Route: 065
     Dates: start: 20100101
  15. LUTEIN [Concomitant]
     Indication: SUPPLEMENTATION THERAPY
     Dosage: 1 Capsule
     Route: 065
     Dates: start: 20110101
  16. LISINOPRIL [Concomitant]
     Indication: HYPERTENSION
     Dosage: 10 Milligram
     Route: 065
     Dates: start: 20120501
  17. ASPIRIN [Concomitant]
     Indication: CARDIAC DISORDER PROPHYLAXIS
     Dosage: 81 Milligram
     Route: 065
     Dates: start: 20100101
  18. STOOL SOFTENER [Concomitant]
     Indication: CHOLECYSTITIS
     Route: 065
     Dates: start: 201208
  19. BABY ASPIRIN [Concomitant]
     Indication: DRUG USE FOR UNKNOWN INDICATION
     Route: 065
  20. MVI [Concomitant]
     Indication: SUPPLEMENTATION THERAPY
     Route: 048
     Dates: start: 2010
  21. BISADYL [Concomitant]
     Indication: CONSTIPATION
     Dosage: 10 Milligram
     Route: 048
     Dates: start: 20120819, end: 20120819
  22. PROMETHAZINE [Concomitant]
     Indication: MULTIPLE ALLERGIES
     Dosage: 1 unit
     Route: 065
     Dates: start: 20120819, end: 20120819
  23. KCL [Concomitant]
     Indication: HYPOKALEMIA
     Dosage: 40mcg/100ml
     Route: 041
     Dates: start: 20120819, end: 20120819
  24. NACL [Concomitant]
     Indication: PROPHYLAXIS
     Dosage: 500 milliliter
     Route: 041
     Dates: start: 20120819, end: 20120819
  25. NACL [Concomitant]
     Dosage: 1000 milligram/sq. meter
     Route: 041
     Dates: start: 20120819, end: 20120819
  26. OXYGEN [Concomitant]
     Indication: DRUG USE FOR UNKNOWN INDICATION
     Route: 065
     Dates: start: 20120820, end: 20120820
  27. METOCLOPRAMIDE [Concomitant]
     Indication: DRUG USE FOR UNKNOWN INDICATION
     Route: 065
     Dates: start: 20120820, end: 20120820
  28. FLAGYL [Concomitant]
     Indication: DRUG USE FOR UNKNOWN INDICATION
     Route: 065
     Dates: start: 20120819, end: 20120819
  29. MOXIFLOXACIN [Concomitant]
     Indication: DRUG USE FOR UNKNOWN INDICATION
     Route: 065
     Dates: start: 20120819, end: 20120819
  30. NORMAL SALINE [Concomitant]
     Indication: DRUG USE FOR UNKNOWN INDICATION
     Route: 065
     Dates: start: 20120820, end: 20120820

REACTIONS (2)
  - Death [Fatal]
  - Abdominal pain lower [Recovered/Resolved]
